FAERS Safety Report 19076411 (Version 2)
Quarter: 2021Q2

REPORT INFORMATION
  Report Type: Report from Study
  Country: None (occurrence: FR)
  Receive Date: 20210331
  Receipt Date: 20210419
  Transmission Date: 20210717
  Serious: Yes (Other)
  Sender: FDA-Public Use
  Company Number: FR-ABBVIE-21K-056-3831987-00

PATIENT
  Age: 21 Year
  Sex: Male

DRUGS (2)
  1. HUMIRA [Suspect]
     Active Substance: ADALIMUMAB
     Route: 058
     Dates: start: 202009
  2. HUMIRA [Suspect]
     Active Substance: ADALIMUMAB
     Indication: AXIAL SPONDYLOARTHRITIS
     Route: 058
     Dates: start: 20200831, end: 20200831

REACTIONS (10)
  - Injection site erythema [Unknown]
  - Hot flush [Recovering/Resolving]
  - Oedema [Recovered/Resolved]
  - Injection site swelling [Recovered/Resolved]
  - Injection site warmth [Unknown]
  - Unevaluable event [Unknown]
  - Asthenia [Recovered/Resolved]
  - Product storage error [Unknown]
  - Fatigue [Unknown]
  - Dizziness [Recovering/Resolving]

NARRATIVE: CASE EVENT DATE: 202101
